FAERS Safety Report 9034719 (Version 3)
Quarter: 2013Q2

REPORT INFORMATION
  Report Type: Spontaneous
  Country: JP (occurrence: JP)
  Receive Date: 20130128
  Receipt Date: 20130522
  Transmission Date: 20140414
  Serious: Yes (Other)
  Sender: FDA-Public Use
  Company Number: JP-GLAXOSMITHKLINE-B0862515A

PATIENT
  Age: 76 Year
  Sex: Male

DRUGS (1)
  1. ALLERMIST [Suspect]
     Indication: RHINITIS ALLERGIC
     Dosage: 55MCG PER DAY
     Route: 045
     Dates: start: 20121127, end: 20130123

REACTIONS (1)
  - Oesophageal candidiasis [Recovering/Resolving]
